FAERS Safety Report 7249637-5 (Version None)
Quarter: 2011Q1

REPORT INFORMATION
  Report Type: 
  Country: None (occurrence: None)
  Receive Date: 20110128
  Receipt Date: 20110125
  Transmission Date: 20110831
  Serious: Yes (Hospitalization, Other)
  Sender: FDA-Public Use
  Company Number: DE-PFIZER INC-2006031203

PATIENT
  Age: 58 Year
  Sex: Male
  Weight: 75 kg

DRUGS (5)
  1. GASTROSIL [Concomitant]
     Route: 048
     Dates: start: 20060209
  2. NORVASC [Concomitant]
     Route: 048
     Dates: start: 20060227
  3. METOHEXAL [Concomitant]
     Route: 048
     Dates: start: 19940101
  4. SUNITINIB MALATE [Suspect]
     Indication: METASTATIC RENAL CELL CARCINOMA
     Dosage: 50 MG, 1X/DAY
     Route: 048
     Dates: start: 20060209
  5. PANTOZOL [Concomitant]
     Route: 048
     Dates: start: 20060209

REACTIONS (2)
  - DIZZINESS [None]
  - VISION BLURRED [None]
